FAERS Safety Report 21275413 (Version 1)
Quarter: 2022Q3

REPORT INFORMATION
  Report Type: Spontaneous
  Country: US (occurrence: US)
  Receive Date: 20220831
  Receipt Date: 20220831
  Transmission Date: 20221027
  Serious: Yes (Hospitalization, Other)
  Sender: FDA-Public Use
  Company Number: US-HORIZON THERAPEUTICS-HZN-2022-006520

PATIENT

DRUGS (6)
  1. RAYOS [Suspect]
     Active Substance: PREDNISONE
     Indication: Pneumocystis jirovecii pneumonia
     Dosage: 40 MG, QD
     Route: 065
  2. RAYOS [Suspect]
     Active Substance: PREDNISONE
     Indication: Hepatosplenomegaly
     Dosage: 20 MG, QD
     Route: 065
  3. RAYOS [Suspect]
     Active Substance: PREDNISONE
     Indication: Hypoxia
  4. RAYOS [Suspect]
     Active Substance: PREDNISONE
     Indication: Sarcoidosis
  5. OMEPRAZOLE [Concomitant]
     Active Substance: OMEPRAZOLE
  6. TRAZODONE [Concomitant]
     Active Substance: TRAZODONE HYDROCHLORIDE

REACTIONS (3)
  - Pneumocystis jirovecii pneumonia [Unknown]
  - Irritability [Unknown]
  - Insomnia [Unknown]
